FAERS Safety Report 14949141 (Version 1)
Quarter: 2018Q2

REPORT INFORMATION
  Report Type: Spontaneous
  Country: BR (occurrence: BR)
  Receive Date: 20180529
  Receipt Date: 20180529
  Transmission Date: 20180711
  Serious: Yes (Hospitalization)
  Sender: FDA-Public Use
  Company Number: BR-MYLANLABS-2018M1034688

PATIENT
  Age: 9 Year
  Sex: Male

DRUGS (2)
  1. TRETINOIN. [Suspect]
     Active Substance: TRETINOIN
     Indication: ACUTE PROMYELOCYTIC LEUKAEMIA
     Dosage: 45MG/M2/DAY
     Route: 048
  2. DAUNORUBICIN [Concomitant]
     Active Substance: DAUNORUBICIN
     Indication: ACUTE PROMYELOCYTIC LEUKAEMIA
     Dosage: 45MG/M2/DAY
     Route: 042

REACTIONS (4)
  - Acute promyelocytic leukaemia [Recovering/Resolving]
  - Skin cancer [Recovering/Resolving]
  - Chloroma [Recovering/Resolving]
  - Neoplasm recurrence [Recovering/Resolving]
